FAERS Safety Report 24435757 (Version 2)
Quarter: 2024Q4

REPORT INFORMATION
  Report Type: Spontaneous
  Country: US (occurrence: US)
  Receive Date: 20241015
  Receipt Date: 20241018
  Transmission Date: 20250115
  Serious: Yes (Hospitalization)
  Sender: MARKSANS PHARMA LIMITED
  Company Number: US-MARKSANS PHARMA LIMITED-MPL202400076

PATIENT
  Age: 2 Year
  Sex: Female

DRUGS (1)
  1. IBUPROFEN [Suspect]
     Active Substance: IBUPROFEN
     Indication: Product used for unknown indication
     Dosage: UNK
     Route: 048

REACTIONS (2)
  - Accidental exposure to product by child [Unknown]
  - Failure of child resistant product closure [Unknown]
